FAERS Safety Report 21410975 (Version 2)
Quarter: 2022Q4

REPORT INFORMATION
  Report Type: Spontaneous
  Country: AU (occurrence: AU)
  Receive Date: 20221005
  Receipt Date: 20221005
  Transmission Date: 20230112
  Serious: Yes (Other)
  Sender: FDA-Public Use
  Company Number: AU-PFIZER INC-PV202200070295

PATIENT
  Age: 66 Year
  Sex: Female

DRUGS (3)
  1. PACLITAXEL [Suspect]
     Active Substance: PACLITAXEL
     Indication: Breast cancer
     Dosage: UNK, CYCLIC(12 CYCLES)
  2. DOXORUBICIN [Concomitant]
     Active Substance: DOXORUBICIN
     Indication: Breast cancer
     Dosage: UNK, CYCLIC(4 CYCLES)
  3. CYCLOPHOSPHAMIDE [Concomitant]
     Active Substance: CYCLOPHOSPHAMIDE
     Indication: Breast cancer
     Dosage: UNK, CYCLIC(4 CYCLES)

REACTIONS (6)
  - Uveitis [Recovered/Resolved]
  - Retinal vasculitis [Recovered/Resolved]
  - Neuropathy peripheral [Recovered/Resolved]
  - Onycholysis [Recovered/Resolved]
  - Hyperkeratosis [Recovered/Resolved]
  - Onychomadesis [Recovered/Resolved]
